FAERS Safety Report 5056684-0 (Version None)
Quarter: 2006Q2

REPORT INFORMATION
  Report Type: 
  Country: None (occurrence: None)
  Receive Date: 20060616
  Receipt Date: 20060407
  Transmission Date: 20061013
  Serious: No
  Sender: FDA-Public Use
  Company Number: 2006US000607

PATIENT
  Age: 71 Year
  Sex: Male

DRUGS (7)
  1. VESICARE [Suspect]
     Indication: URINARY RETENTION
     Dosage: 5 MG, ORAL  :  QOD , ORAL
     Route: 048
     Dates: end: 20060201
  2. VESICARE [Suspect]
     Indication: URINARY RETENTION
     Dosage: 5 MG, ORAL  :  QOD , ORAL
     Route: 048
     Dates: start: 20060201
  3. METFORMIN [Concomitant]
  4. GLYBURIDE [Concomitant]
  5. LISINOPRIL [Concomitant]
  6. KLONOPIN [Concomitant]
  7. ELTA CREAM [Concomitant]

REACTIONS (1)
  - DRY SKIN [None]
